FAERS Safety Report 10436113 (Version 1)
Quarter: 2014Q3

REPORT INFORMATION
  Report Type: Spontaneous
  Country: CH (occurrence: CH)
  Receive Date: 20140908
  Receipt Date: 20140908
  Transmission Date: 20150326
  Serious: Yes (Life-Threatening, Hospitalization, Other)
  Sender: FDA-Public Use
  Company Number: CH-009507513-1409CHE001146

PATIENT
  Age: 29 Year
  Sex: Male

DRUGS (3)
  1. ESMERON [Suspect]
     Active Substance: ROCURONIUM BROMIDE
     Indication: CRANIOTOMY
     Dosage: STRENGTH UNSPECIFIED; TOTAL DAILY DOSE 70 MG
     Route: 040
     Dates: start: 20140408, end: 20140408
  2. DISOPRIVAN [Concomitant]
     Active Substance: PROPOFOL
     Indication: CRANIOTOMY
     Dosage: TOTAL DAILY DOSE 120 MICROGRAM, FORMULATION: VIALS
     Route: 040
     Dates: start: 20140408, end: 20140408
  3. FENTANYL. [Concomitant]
     Active Substance: FENTANYL
     Indication: CRANIOTOMY
     Dosage: UNK
     Route: 042
     Dates: start: 20140408, end: 20140408

REACTIONS (6)
  - Anaphylactic reaction [Recovered/Resolved]
  - Anaphylactic shock [Recovered/Resolved]
  - Flushing [Recovered/Resolved]
  - Drug hypersensitivity [Recovered/Resolved]
  - Resuscitation [Recovered/Resolved]
  - Skin test positive [Recovered/Resolved]

NARRATIVE: CASE EVENT DATE: 20140408
